FAERS Safety Report 5659369-2 (Version None)
Quarter: 2008Q1

REPORT INFORMATION
  Report Type: 
  Country: None (occurrence: None)
  Receive Date: 20080311
  Receipt Date: 20080226
  Transmission Date: 20080703
  Serious: Yes (Life-Threatening)
  Sender: FDA-Public Use
  Company Number: GB-RANBAXY-2008RR-13353

PATIENT

DRUGS (3)
  1. FLOXACILLIN SODIUM [Suspect]
     Indication: SKIN INFECTION
     Dosage: 500 MG, TID
     Route: 048
  2. ACETAMINOPHEN [Suspect]
     Indication: ANALGESIA
     Dosage: 1 G, TID
     Route: 048
  3. ACICLOVIR TABLETS BP 400MG [Concomitant]
     Indication: HERPES ZOSTER
     Dosage: 400 MG, UNK
     Route: 048

REACTIONS (1)
  - ACUTE HEPATIC FAILURE [None]
